FAERS Safety Report 25940446 (Version 1)
Quarter: 2025Q4

REPORT INFORMATION
  Report Type: Spontaneous
  Country: US (occurrence: None)
  Receive Date: 20251017
  Receipt Date: 20251017
  Transmission Date: 20260118
  Serious: Yes (Death, Hospitalization)
  Sender: FDA-CTU
  Company Number: None

PATIENT
  Age: 70 Year
  Sex: Male

DRUGS (1)
  1. CARVYKTI [Suspect]
     Active Substance: CILTACABTAGENE AUTOLEUCEL

REACTIONS (11)
  - Pain in extremity [None]
  - Neck pain [None]
  - Facial paralysis [None]
  - Neurotoxicity [None]
  - Tremor [None]
  - Cognitive disorder [None]
  - Encephalopathy [None]
  - Hallucination [None]
  - Insomnia [None]
  - Asthenia [None]
  - Viral infection [None]

NARRATIVE: CASE EVENT DATE: 20251007
